FAERS Safety Report 17939995 (Version 1)
Quarter: 2020Q2

REPORT INFORMATION
  Report Type: Spontaneous
  Country: IN (occurrence: IN)
  Receive Date: 20200625
  Receipt Date: 20200625
  Transmission Date: 20200714
  Serious: Yes (Hospitalization, Other)
  Sender: FDA-Public Use
  Company Number: IN-SA-2020SA155106

PATIENT

DRUGS (1)
  1. RIFAMPICIN [Suspect]
     Active Substance: RIFAMPIN
     Indication: LEPROMATOUS LEPROSY
     Dosage: UNK

REACTIONS (9)
  - Skin lesion [Recovered/Resolved with Sequelae]
  - Type 2 lepra reaction [Recovered/Resolved with Sequelae]
  - Pyrexia [Recovered/Resolved with Sequelae]
  - Conjunctival hyperaemia [Recovered/Resolved with Sequelae]
  - Rash erythematous [Recovered/Resolved with Sequelae]
  - Drug resistance [Unknown]
  - Myalgia [Recovered/Resolved with Sequelae]
  - Tenderness [Recovered/Resolved with Sequelae]
  - Pigmentation disorder [Unknown]
